FAERS Safety Report 9502997 (Version 1)
Quarter: 2013Q1

REPORT INFORMATION
  Report Type: Spontaneous
  Country: US (occurrence: None)
  Receive Date: 20130131
  Receipt Date: 20130131
  Transmission Date: 20140127
  Serious: Yes (Other)
  Sender: FDA-Public Use
  Company Number: DSA_55747_2012

PATIENT
  Sex: Male

DRUGS (1)
  1. ENLAPRIL [Suspect]
     Indication: BLOOD PRESSURE

REACTIONS (4)
  - Myocardial infarction [None]
  - Blood pressure inadequately controlled [None]
  - Drug effect decreased [None]
  - Product quality issue [None]
